FAERS Safety Report 13130576 (Version 1)
Quarter: 2017Q1

REPORT INFORMATION
  Report Type: Spontaneous
  Country: US (occurrence: US)
  Receive Date: 20170119
  Receipt Date: 20170119
  Transmission Date: 20170428
  Serious: No
  Sender: FDA-Public Use
  Company Number: US-CELGENEUS-USA-2017011123

PATIENT
  Age: 64 Year
  Sex: Male

DRUGS (6)
  1. THALOMID [Suspect]
     Active Substance: THALIDOMIDE
     Dosage: 100 MILLIGRAM
     Route: 048
     Dates: start: 200703
  2. THALOMID [Suspect]
     Active Substance: THALIDOMIDE
     Dosage: 100-200MG
     Route: 048
     Dates: start: 200511, end: 20051231
  3. KYPROLIS [Concomitant]
     Active Substance: CARFILZOMIB
     Indication: PRODUCT USED FOR UNKNOWN INDICATION
     Route: 065
     Dates: start: 201608
  4. THALOMID [Suspect]
     Active Substance: THALIDOMIDE
     Indication: PLASMA CELL MYELOMA
     Dosage: 100 MILLIGRAM
     Route: 048
     Dates: start: 20050905
  5. FENTANYL. [Concomitant]
     Active Substance: FENTANYL
     Indication: PAIN
     Dosage: 75 MILLIGRAM
     Route: 065
  6. HYDROCODONE [Concomitant]
     Active Substance: HYDROCODONE
     Indication: PAIN
     Route: 065

REACTIONS (3)
  - Insomnia [Unknown]
  - Vomiting [Unknown]
  - Disease recurrence [Unknown]

NARRATIVE: CASE EVENT DATE: 201201
